FAERS Safety Report 8791877 (Version 2)
Quarter: 2013Q1

REPORT INFORMATION
  Report Type: Spontaneous
  Country: US (occurrence: US)
  Receive Date: 20120918
  Receipt Date: 20130103
  Transmission Date: 20140127
  Serious: Yes (Death, Hospitalization, Other)
  Sender: FDA-Public Use
  Company Number: US-ELI_LILLY_AND_COMPANY-US201209003711

PATIENT
  Sex: Female

DRUGS (4)
  1. HUMULIN NPH [Suspect]
     Indication: DIABETES MELLITUS
     Dosage: 60 U, QD
  2. NITROGLYCERIN [Concomitant]
  3. MORPHINE [Concomitant]
  4. DILAUDID [Concomitant]

REACTIONS (7)
  - Myocardial infarction [Fatal]
  - Transient ischaemic attack [Unknown]
  - Coronary artery disease [Unknown]
  - Hypertension [Unknown]
  - Blood cholesterol increased [Unknown]
  - Overweight [Unknown]
  - Osteoarthritis [Unknown]
